FAERS Safety Report 8542204-2 (Version None)
Quarter: 2012Q3

REPORT INFORMATION
  Report Type: 
  Country: None (occurrence: None)
  Receive Date: 20120726
  Receipt Date: 20111007
  Transmission Date: 20120928
  Serious: No
  Sender: FDA-Public Use
  Company Number: US-ASTRAZENECA-2011SE60468

PATIENT
  Sex: Female
  Weight: 59 kg

DRUGS (1)
  1. SEROQUEL [Suspect]
     Indication: PSYCHOTIC DISORDER
     Dosage: HS
     Route: 048
     Dates: start: 20090101

REACTIONS (3)
  - AGITATION [None]
  - ANGER [None]
  - COMMUNICATION DISORDER [None]
